FAERS Safety Report 8086426 (Version 4)
Quarter: 2022Q4

REPORT INFORMATION
  Report Type: Spontaneous
  Country: US (occurrence: None)
  Receive Date: 20110811
  Receipt Date: 20221201
  Transmission Date: 20230113
  Serious: Yes (Hospitalization, Other)
  Sender: FDA-Public Use
  Company Number: US-ROCHE-794855

PATIENT
  Age: 68 Year
  Sex: Female

DRUGS (2)
  1. BONIVA [Suspect]
     Active Substance: IBANDRONATE SODIUM
     Indication: Osteoporosis
     Route: 048
     Dates: start: 20070101
  2. FOSAMAX [Suspect]
     Active Substance: ALENDRONATE SODIUM
     Indication: Osteoporosis
     Route: 048
     Dates: start: 19990101

REACTIONS (9)
  - Femur fracture [Unknown]
  - Low turnover osteopathy [Unknown]
  - Anxiety [Unknown]
  - Emotional distress [Unknown]
  - Stress fracture [Unknown]
  - Wrist fracture [Unknown]
  - Ulna fracture [Unknown]
  - Radius fracture [Unknown]
  - Epicondylitis [Unknown]

NARRATIVE: CASE EVENT DATE: 20061021
